FAERS Safety Report 15349376 (Version 3)
Quarter: 2019Q1

REPORT INFORMATION
  Report Type: Spontaneous
  Country: US (occurrence: US)
  Receive Date: 20180904
  Receipt Date: 20190114
  Transmission Date: 20190417
  Serious: Yes (Other)
  Sender: FDA-Public Use
  Company Number: US-SA-2018SA246995

PATIENT
  Age: 55 Year
  Sex: Female
  Weight: 74.8 kg

DRUGS (15)
  1. TAMOXIFEN [Concomitant]
     Active Substance: TAMOXIFEN
     Dosage: UNK
     Dates: start: 2013
  2. RANEXA [Concomitant]
     Active Substance: RANOLAZINE
     Dosage: UNK
     Dates: start: 2011
  3. ACTINOMYCIN D [Concomitant]
     Active Substance: DACTINOMYCIN
  4. MITOMYCIN. [Concomitant]
     Active Substance: MITOMYCIN
  5. METFORMIN [Concomitant]
     Active Substance: METFORMIN HYDROCHLORIDE
     Dosage: UNK
     Dates: start: 201812
  6. SYNJARDY XR [Concomitant]
     Active Substance: EMPAGLIFLOZIN\METFORMIN HYDROCHLORIDE
     Dosage: UNK
  7. INVOKAMET [Concomitant]
     Active Substance: CANAGLIFLOZIN\METFORMIN HYDROCHLORIDE
     Dosage: UNK
  8. TAXOTERE [Suspect]
     Active Substance: DOCETAXEL
     Dosage: 100 MG QW
     Route: 042
     Dates: start: 20120423, end: 20120423
  9. METOPROLOL. [Concomitant]
     Active Substance: METOPROLOL
     Dosage: UNK
  10. CLOPIDOGREL [Concomitant]
     Active Substance: CLOPIDOGREL BISULFATE
     Dosage: UNK
  11. PANTOPRAZOLE [Concomitant]
     Active Substance: PANTOPRAZOLE
     Dosage: UNK
  12. TAXOTERE [Suspect]
     Active Substance: DOCETAXEL
     Indication: BREAST CANCER FEMALE
     Dosage: 100 MG, QW
     Route: 042
     Dates: start: 20120305, end: 20120305
  13. BAYER ASPIRIN [Concomitant]
     Active Substance: ASPIRIN
     Dosage: UNK
  14. CYCLOBENZAPRIN [Concomitant]
     Active Substance: CYCLOBENZAPRINE
     Dosage: UNK
     Dates: start: 2012
  15. CITALOPRAM [Concomitant]
     Active Substance: CITALOPRAM HYDROBROMIDE
     Dosage: UNK
     Dates: start: 2012

REACTIONS (3)
  - Alopecia [Recovering/Resolving]
  - Emotional distress [Unknown]
  - Psychological trauma [Unknown]

NARRATIVE: CASE EVENT DATE: 201209
